FAERS Safety Report 17167600 (Version 1)
Quarter: 2019Q4

REPORT INFORMATION
  Report Type: Spontaneous
  Country: CH (occurrence: CH)
  Receive Date: 20191217
  Receipt Date: 20191217
  Transmission Date: 20200122
  Serious: Yes (Death)
  Sender: FDA-Public Use
  Company Number: CH-ROCHE-2500790

PATIENT
  Age: 3 Year
  Sex: Male

DRUGS (7)
  1. ACTILYSE [Suspect]
     Active Substance: ALTEPLASE
     Indication: THROMBOSIS
     Route: 042
  2. AMOXICILLIN. [Concomitant]
     Active Substance: AMOXICILLIN
     Indication: OROPHARYNGEAL PAIN
  3. CLAVULANIC ACID [Concomitant]
     Active Substance: CLAVULANIC ACID
     Indication: PYREXIA
     Route: 048
  4. AMOXICILLIN. [Concomitant]
     Active Substance: AMOXICILLIN
     Indication: PYREXIA
     Route: 048
  5. CLAVULANIC ACID [Concomitant]
     Active Substance: CLAVULANIC ACID
     Indication: OROPHARYNGEAL PAIN
  6. AMOXICILLIN. [Concomitant]
     Active Substance: AMOXICILLIN
     Indication: CONJUNCTIVAL HYPERAEMIA
  7. CLAVULANIC ACID [Concomitant]
     Active Substance: CLAVULANIC ACID
     Indication: CONJUNCTIVAL HYPERAEMIA

REACTIONS (4)
  - Intracranial pressure increased [Fatal]
  - Off label use [Unknown]
  - Intentional product use issue [Unknown]
  - Cerebral haemorrhage [Fatal]
